FAERS Safety Report 6493842-2 (Version None)
Quarter: 2009Q4

REPORT INFORMATION
  Report Type: 
  Country: None (occurrence: None)
  Receive Date: 20091214
  Receipt Date: 20090108
  Transmission Date: 20100525
  Serious: No
  Sender: FDA-Public Use
  Company Number: US-BRISTOL-MYERS SQUIBB COMPANY-14401889

PATIENT
  Age: 41 Year
  Sex: Female
  Weight: 63 kg

DRUGS (2)
  1. ABILIFY [Suspect]
     Indication: MAJOR DEPRESSION
     Dosage: DOSE WAS REDUCED TO 1 MG
     Dates: start: 20080101
  2. ATIVAN [Concomitant]

REACTIONS (12)
  - ABDOMINAL DISTENSION [None]
  - ANGER [None]
  - ANXIETY [None]
  - ASTHENIA [None]
  - BLOOD GLUCOSE DECREASED [None]
  - DEPRESSION [None]
  - DYSPNOEA [None]
  - HYPERPHAGIA [None]
  - INSOMNIA [None]
  - MOOD ALTERED [None]
  - RESTLESSNESS [None]
  - WEIGHT INCREASED [None]
